FAERS Safety Report 15298117 (Version 1)
Quarter: 2018Q3

REPORT INFORMATION
  Report Type: Spontaneous
  Country: RO (occurrence: RO)
  Receive Date: 20180820
  Receipt Date: 20180820
  Transmission Date: 20181010
  Serious: Yes (Life-Threatening, Other)
  Sender: FDA-Public Use
  Company Number: RO-LINDE-RO-LHC-2018197

PATIENT
  Age: 56 Month
  Sex: Male

DRUGS (1)
  1. OXYGEN. [Suspect]
     Active Substance: OXYGEN
     Indication: HYPOXIA
     Route: 055

REACTIONS (4)
  - Seizure [Unknown]
  - Cardio-respiratory arrest [Unknown]
  - Drug ineffective [Not Recovered/Not Resolved]
  - Hypoxia [Unknown]
